FAERS Safety Report 6279469-6 (Version None)
Quarter: 2009Q3

REPORT INFORMATION
  Report Type: 
  Country: None (occurrence: None)
  Receive Date: 20090721
  Receipt Date: 20090710
  Transmission Date: 20100115
  Serious: Yes (Life-Threatening)
  Sender: FDA-Public Use
  Company Number: 2009AL004669

PATIENT
  Age: 82 Year
  Sex: Female

DRUGS (1)
  1. TICLOPIDINE HYDROCHLORIDE [Suspect]

REACTIONS (1)
  - LEUKOPENIA [None]
